FAERS Safety Report 5559244-8 (Version None)
Quarter: 2007Q4

REPORT INFORMATION
  Report Type: 
  Country: None (occurrence: None)
  Receive Date: 20071214
  Receipt Date: 20070921
  Transmission Date: 20080405
  Serious: No
  Sender: FDA-Public Use
  Company Number: US-ABBOTT-07P-163-0418764-00

PATIENT
  Sex: Female
  Weight: 102 kg

DRUGS (7)
  1. HUMIRA [Suspect]
     Indication: RHEUMATOID ARTHRITIS
     Route: 058
     Dates: start: 20070220
  2. DICLOFENAC SODIUM EC [Concomitant]
     Indication: RHEUMATOID ARTHRITIS
     Route: 048
  3. DIOVAN HCT [Concomitant]
     Indication: HYPERTENSION
     Dosage: 80/12.5 MG
     Route: 048
  4. ANOVLAR [Concomitant]
     Indication: HOT FLUSH
     Dosage: 1MG/5 MCG
     Route: 048
  5. PREDNISONE [Concomitant]
     Indication: RHEUMATOID ARTHRITIS
     Route: 048
  6. ALENDRONATE SODIUM [Concomitant]
     Indication: MINERAL SUPPLEMENTATION
     Route: 048
  7. METHOTREXATE [Concomitant]
     Indication: RHEUMATOID ARTHRITIS
     Route: 048

REACTIONS (2)
  - HYPOAESTHESIA [None]
  - INJECTION SITE IRRITATION [None]
